FAERS Safety Report 8969491 (Version 1)
Quarter: 2012Q4

REPORT INFORMATION
  Report Type: Spontaneous
  Country: US (occurrence: None)
  Receive Date: 20121210
  Receipt Date: 20121210
  Transmission Date: 20130627
  Serious: No
  Sender: FDA-Public Use
  Company Number: B0850351A

PATIENT
  Age: 17 Year
  Sex: Female

DRUGS (1)
  1. LAMICTAL (FORMULATION UNKNOWN) (LAMOTRIGINE [Suspect]
     Indication: DEPRESSION

REACTIONS (4)
  - Meningitis aseptic [None]
  - Off label use [None]
  - Hypersensitivity [None]
  - Rash erythematous [None]
